FAERS Safety Report 17251585 (Version 1)
Quarter: 2020Q1

REPORT INFORMATION
  Report Type: Spontaneous
  Country: US (occurrence: US)
  Receive Date: 20200109
  Receipt Date: 20200109
  Transmission Date: 20200409
  Serious: No
  Sender: FDA-Public Use
  Company Number: US-GILEAD-2020-0445857

PATIENT
  Sex: Male

DRUGS (11)
  1. SOFOSBUVIR;VELPATASVIR [Suspect]
     Active Substance: SOFOSBUVIR\VELPATASVIR
     Indication: CHRONIC HEPATITIS C
     Dosage: 1 DOSAGE FORM, QD
     Route: 048
     Dates: start: 201912
  2. LASIX [Concomitant]
     Active Substance: FUROSEMIDE
     Dosage: UNKNOWN
  3. KEFLEX [Concomitant]
     Active Substance: CEPHALEXIN
     Dosage: UNKNOWN
  4. HYDROCHLOROTHIAZIDE. [Concomitant]
     Active Substance: HYDROCHLOROTHIAZIDE
     Dosage: UNKNOWN
  5. AMLODIPINE BESYLATE. [Concomitant]
     Active Substance: AMLODIPINE BESYLATE
     Dosage: UNKNOWN
  6. AMLODIPINE BESYLATE. [Concomitant]
     Active Substance: AMLODIPINE BESYLATE
     Dosage: UNKNOWN
  7. HYDROCHLOROTHIAZIDE. [Concomitant]
     Active Substance: HYDROCHLOROTHIAZIDE
     Dosage: UNKNOWN
  8. CEPHALEXIN [CEFALEXIN] [Concomitant]
     Active Substance: CEPHALEXIN
     Dosage: UNKNOWN
  9. CEPHALEXIN [CEFALEXIN] [Concomitant]
     Active Substance: CEPHALEXIN
     Dosage: UNKNOWN
  10. LASIX [Concomitant]
     Active Substance: FUROSEMIDE
     Dosage: UNKNOWN
  11. KEFLEX [Concomitant]
     Active Substance: CEPHALEXIN
     Dosage: UNKNOWN

REACTIONS (1)
  - Product dose omission [Recovered/Resolved]
